FAERS Safety Report 9663153 (Version 1)
Quarter: 2013Q4

REPORT INFORMATION
  Report Type: Report from Study
  Country: US (occurrence: US)
  Receive Date: 20131101
  Receipt Date: 20131101
  Transmission Date: 20140711
  Serious: Yes (Hospitalization)
  Sender: FDA-Public Use
  Company Number: US-ROCHE-1295867

PATIENT
  Age: 46 Year
  Sex: Male

DRUGS (9)
  1. RANIBIZUMAB [Suspect]
     Indication: AGE-RELATED MACULAR DEGENERATION
     Dosage: MOST RECENT DOSE PRIOR TO THE SAE: 03/OCT/2013.
     Route: 065
     Dates: start: 20120409
  2. BEVACIZUMAB [Suspect]
     Indication: AGE-RELATED MACULAR DEGENERATION
     Route: 050
     Dates: start: 20120427
  3. POLYVINYL ALCOHOL [Concomitant]
     Dosage: GUTTA DROP
     Route: 065
     Dates: start: 20120628
  4. TOBRADEX [Concomitant]
     Dosage: 0.3-0.1% /GTT DROPS
     Route: 065
     Dates: start: 20120501
  5. VICKS NYQUIL COUGH LIQUID [Concomitant]
     Route: 048
     Dates: start: 20121216
  6. GLUCOPHAGE [Concomitant]
     Route: 048
  7. BENICAR HCT [Concomitant]
     Dosage: 40/24/MG
     Route: 048
  8. ASPIRIN [Concomitant]
     Route: 048
  9. ROSUVASTATIN [Concomitant]
     Route: 048

REACTIONS (1)
  - Convulsion [Recovered/Resolved]
